FAERS Safety Report 5640091-3 (Version None)
Quarter: 2008Q1

REPORT INFORMATION
  Report Type: 
  Country: None (occurrence: None)
  Receive Date: 20080227
  Receipt Date: 20080128
  Transmission Date: 20080703
  Serious: No
  Sender: FDA-Public Use
  Company Number: US-BAXTER-2008BH000937

PATIENT
  Sex: Male

DRUGS (15)
  1. HEPARIN SODIUM [Suspect]
     Indication: PROPHYLAXIS
     Route: 033
     Dates: start: 20050101, end: 20080124
  2. HEPARIN SODIUM [Suspect]
     Route: 033
     Dates: start: 20050101, end: 20080124
  3. HEPARIN SODIUM [Suspect]
     Route: 033
     Dates: start: 20050101, end: 20080124
  4. EXTRANEAL [Concomitant]
     Indication: RENAL FAILURE
     Route: 033
     Dates: start: 20050101
  5. TEMAZEPAM [Concomitant]
     Indication: INSOMNIA
     Route: 048
  6. MORPHINE SULFATE [Concomitant]
     Indication: PAIN
     Route: 048
  7. ASPIRIN [Concomitant]
     Indication: CARDIAC DISORDER
     Route: 048
  8. LISINOPRIL [Concomitant]
     Indication: HYPERTENSION
     Route: 048
  9. CARVEDILOL [Concomitant]
     Indication: CARDIAC DISORDER
     Route: 048
  10. SIMVASTATIN [Concomitant]
     Indication: BLOOD CHOLESTEROL
     Route: 048
  11. RENA-VITE [Concomitant]
     Indication: RENAL DISORDER
     Route: 048
  12. ALLOPURINOL [Concomitant]
     Indication: GOUT
     Route: 048
  13. FUROSEMIDE [Concomitant]
     Indication: BLOOD PRESSURE
     Route: 048
  14. INDOMETHACIN [Concomitant]
     Indication: PAIN
     Route: 048
  15. NITROGLICERINA [Concomitant]
     Indication: ANGINA PECTORIS
     Route: 048

REACTIONS (8)
  - ABDOMINAL PAIN [None]
  - BLOOD PRESSURE DECREASED [None]
  - DIZZINESS [None]
  - HEADACHE [None]
  - MALAISE [None]
  - NAUSEA [None]
  - REGURGITATION [None]
  - RETCHING [None]
